FAERS Safety Report 7807370-2 (Version None)
Quarter: 2011Q4

REPORT INFORMATION
  Report Type: 
  Country: None (occurrence: None)
  Receive Date: 20111011
  Receipt Date: 20111006
  Transmission Date: 20120403
  Serious: Yes (Hospitalization, Other)
  Sender: FDA-Public Use
  Company Number: AU-B.I. PHARMACEUTICALS,INC./RIDGEFIELD-2011-AU-01646AU

PATIENT
  Sex: Male
  Weight: 83 kg

DRUGS (12)
  1. FUROSEMIDE [Concomitant]
     Dosage: 40 MG
  2. DIAMICRON [Concomitant]
     Dosage: 120 MG
  3. METEX XR [Concomitant]
  4. ALLOPURINOL [Concomitant]
     Dosage: 200 MG
  5. METOPROLOL TARTRATE [Concomitant]
     Dosage: 100 MG
  6. OLMESARTAN MEDOXOMIL [Concomitant]
     Dosage: 40 MG
  7. PRADAXA [Suspect]
     Indication: ATRIAL FIBRILLATION
     Dosage: 300 MG
     Dates: start: 20110707, end: 20110709
  8. ASPIRIN [Concomitant]
     Dosage: 100 MG
  9. IMDUR [Concomitant]
     Dosage: 60 MG
  10. CLOPIDOGREL [Concomitant]
     Dosage: 75 MG
  11. JANUMET [Concomitant]
     Dosage: 50/1000MG BD
  12. CADUET [Concomitant]
     Dosage: 10/40MG

REACTIONS (2)
  - CARDIAC FAILURE CONGESTIVE [None]
  - PULMONARY HAEMORRHAGE [None]
